FAERS Safety Report 10218802 (Version 2)
Quarter: 2014Q2

REPORT INFORMATION
  Report Type: Spontaneous
  Country: US (occurrence: None)
  Receive Date: 20140603
  Receipt Date: 20140620
  Transmission Date: 20141212
  Serious: Yes (Hospitalization)
  Sender: FDA-Public Use
  Company Number: US-OR-11P1007483

PATIENT
  Age: 41 Year
  Sex: Female
  Weight: 69.4 kg

DRUGS (6)
  1. SOLODYN ER TABLET 115 MG (TABLET) (MINOCYCLINE HYDROCHLORIDE [Suspect]
     Indication: ACNE
     Route: 048
     Dates: start: 201005, end: 201106
  2. SOLODYN ER TABLET 65 MG (TABLET) (MINOCYCLINE HYDROCHLORIDE) [Suspect]
     Indication: ACNE
     Route: 048
     Dates: start: 201003, end: 201005
  3. CALCIUM [Concomitant]
  4. VITAMIN D [Concomitant]
  5. ZYZAL [Concomitant]
  6. LAMISIL [Concomitant]

REACTIONS (11)
  - Acute hepatic failure [None]
  - Aphagia [None]
  - Dyspepsia [None]
  - Ageusia [None]
  - Weight decreased [None]
  - Impaired work ability [None]
  - No therapeutic response [None]
  - Hepatitis [None]
  - Lymphoma [None]
  - Hepatic cancer [None]
  - Gastrooesophageal reflux disease [None]
